FAERS Safety Report 9434329 (Version 1)
Quarter: 2013Q3

REPORT INFORMATION
  Report Type: Spontaneous
  Country: US (occurrence: None)
  Receive Date: 20130731
  Receipt Date: 20130731
  Transmission Date: 20140515
  Serious: Yes (Life-Threatening, Hospitalization)
  Sender: FDA-Public Use
  Company Number: None

PATIENT
  Sex: Female
  Weight: 50.8 kg

DRUGS (1)
  1. PROLIA INJECTION-AMGEN [Suspect]
     Indication: OSTEOPOROSIS
     Dosage: 60MG  1  UPPER ARM  NOT GIVEN BY SUBCUTANEOUS
     Dates: start: 20120905

REACTIONS (8)
  - Arthralgia [None]
  - Bone pain [None]
  - Back pain [None]
  - Urinary tract infection [None]
  - Jaw disorder [None]
  - Abdominal pain [None]
  - Chest pain [None]
  - Immune system disorder [None]
